FAERS Safety Report 19908482 (Version 2)
Quarter: 2021Q4

REPORT INFORMATION
  Report Type: Report from Study
  Country: KR (occurrence: KR)
  Receive Date: 20211001
  Receipt Date: 20211008
  Transmission Date: 20220304
  Serious: Yes (Hospitalization)
  Sender: FDA-Public Use
  Company Number: KR-EISAI MEDICAL RESEARCH-EC-2021-100670

PATIENT
  Age: 78 Year
  Sex: Male
  Weight: 61.5 kg

DRUGS (16)
  1. LENVIMA [Suspect]
     Active Substance: LENVATINIB
     Indication: Hepatocellular carcinoma
     Route: 048
     Dates: start: 20201105, end: 20201117
  2. LENVIMA [Suspect]
     Active Substance: LENVATINIB
     Route: 048
     Dates: start: 20201204, end: 20201227
  3. LENVIMA [Suspect]
     Active Substance: LENVATINIB
     Route: 048
     Dates: start: 20210628
  4. CARVEDILOL [Concomitant]
     Active Substance: CARVEDILOL
     Indication: Hypertension
     Route: 048
     Dates: start: 20181220
  5. TORSEM [Concomitant]
     Indication: Hypertension
     Route: 048
     Dates: start: 20181220, end: 20201111
  6. ELIQUIS [Concomitant]
     Active Substance: APIXABAN
     Indication: Hypertension
     Route: 048
     Dates: start: 20191114
  7. ALDACTONE [Concomitant]
     Active Substance: SPIRONOLACTONE
     Indication: Ascites
     Route: 048
     Dates: start: 20201102, end: 20201117
  8. FURIX [Concomitant]
     Indication: Ascites
     Route: 048
     Dates: start: 20201102, end: 20201117
  9. LIVACT GRAN [Concomitant]
     Indication: Cirrhosis alcoholic
     Dosage: 3 CAPS
     Route: 048
     Dates: start: 20190603
  10. DIETARY SUPPLEMENT\HERBALS\MILK THISTLE [Concomitant]
     Active Substance: DIETARY SUPPLEMENT\HERBALS\MILK THISTLE
     Indication: Cirrhosis alcoholic
     Dosage: 3 CAPS
     Route: 048
     Dates: start: 20181115
  11. URSODIOL [Concomitant]
     Active Substance: URSODIOL
     Indication: Cirrhosis alcoholic
     Route: 048
     Dates: start: 20180704
  12. PENNEL [Concomitant]
     Indication: Cirrhosis alcoholic
     Dosage: 3 CAPS
     Route: 048
     Dates: start: 20200729, end: 20210223
  13. SHUMACTON [Concomitant]
     Indication: Diarrhoea
     Dosage: 3 CAPS
     Route: 048
     Dates: start: 20201109, end: 20201117
  14. POLYBUTIN [Concomitant]
     Indication: Prophylaxis
     Route: 048
     Dates: start: 20201109, end: 20210502
  15. ZEMIGLO [Concomitant]
     Indication: Diabetes mellitus
     Route: 048
     Dates: start: 20201106, end: 20201126
  16. OMEPRAZOLE [Concomitant]
     Active Substance: OMEPRAZOLE
     Indication: Prophylaxis
     Route: 048
     Dates: start: 20201111, end: 20201229

REACTIONS (1)
  - Asthenia [Recovered/Resolved]

NARRATIVE: CASE EVENT DATE: 20201118
